FAERS Safety Report 9774489 (Version 1)
Quarter: 2013Q4

REPORT INFORMATION
  Report Type: Report from Study
  Country: US (occurrence: US)
  Receive Date: 20131220
  Receipt Date: 20131220
  Transmission Date: 20140711
  Serious: Yes (Hospitalization, Disabling, Other)
  Sender: FDA-Public Use
  Company Number: US-US-EMD SERONO, INC.-7257304

PATIENT
  Age: 69 Year
  Sex: Female

DRUGS (1)
  1. REBIF [Suspect]
     Indication: MULTIPLE SCLEROSIS
     Route: 058
     Dates: start: 20030701

REACTIONS (4)
  - Renal failure acute [Recovered/Resolved]
  - Urinary tract infection [Unknown]
  - Abasia [Not Recovered/Not Resolved]
  - Pituitary tumour [Not Recovered/Not Resolved]
